FAERS Safety Report 25800649 (Version 1)
Quarter: 2025Q3

REPORT INFORMATION
  Report Type: Spontaneous
  Country: EU (occurrence: EU)
  Receive Date: 20250915
  Receipt Date: 20250915
  Transmission Date: 20251020
  Serious: Yes (Other)
  Sender: TEVA
  Company Number: EU-002147023-NVSC2023DE186908

PATIENT
  Sex: Female

DRUGS (3)
  1. ALBUTEROL [Suspect]
     Active Substance: ALBUTEROL
     Indication: Product used for unknown indication
     Route: 065
     Dates: end: 2023
  2. GLYCOPYRRONIUM\INDACATEROL [Suspect]
     Active Substance: GLYCOPYRRONIUM\INDACATEROL
     Indication: Product used for unknown indication
     Route: 065
     Dates: start: 2020, end: 2023
  3. GLYCOPYRRONIUM\INDACATEROL [Suspect]
     Active Substance: GLYCOPYRRONIUM\INDACATEROL
     Indication: Product used for unknown indication
     Dosage: UNK, BID, IN THE MORNING AND IN THE EVENING
     Route: 065
     Dates: start: 2023

REACTIONS (4)
  - Choking [Recovered/Resolved]
  - Drug intolerance [Unknown]
  - Cough [Recovered/Resolved]
  - Incorrect dosage administered [Not Recovered/Not Resolved]

NARRATIVE: CASE EVENT DATE: 20230101
